FAERS Safety Report 7494943-2 (Version None)
Quarter: 2011Q2

REPORT INFORMATION
  Report Type: 
  Country: None (occurrence: None)
  Receive Date: 20110520
  Receipt Date: 20110510
  Transmission Date: 20111010
  Serious: Yes (Congenital Anomaly)
  Sender: FDA-Public Use
  Company Number: US-UCBSA-8020984

PATIENT
  Sex: Male
  Weight: 13.8 kg

DRUGS (6)
  1. FOLIC ACID [Concomitant]
     Dosage: 2.5 MG 1/2 TABLET DOSE FREQ.: DAILY
     Route: 063
     Dates: start: 20060806
  2. VITAMIN AND MINERAL PRENATAL SUPPLEMENT W/ FOLIC ACID CAP [Concomitant]
     Indication: PREGNANCY
     Route: 064
     Dates: start: 20051101, end: 20060806
  3. FOLIC ACID [Concomitant]
     Indication: PREGNANCY
     Dosage: 1/2 TABLET
     Route: 064
     Dates: start: 20051101, end: 20060806
  4. KEPPRA [Suspect]
     Indication: EPILEPSY
     Dosage: 1500 MG DAILY
     Route: 064
     Dates: start: 20051101, end: 20060806
  5. KEPPRA [Suspect]
     Dosage: 1500 MG DAILY
     Route: 063
     Dates: start: 20060806
  6. VITAMIN AND MINERAL PRENATAL SUPPLEMENT W/ FOLIC ACID CAP [Concomitant]
     Route: 063
     Dates: start: 20060806

REACTIONS (4)
  - ATRIAL SEPTAL DEFECT [None]
  - VENTRICULAR SEPTAL DEFECT [None]
  - DRUG EXPOSURE VIA BREAST MILK [None]
  - DRUG EXPOSURE DURING PREGNANCY [None]
